FAERS Safety Report 18057246 (Version 2)
Quarter: 2021Q2

REPORT INFORMATION
  Report Type: Spontaneous
  Country: CA (occurrence: CA)
  Receive Date: 20200722
  Receipt Date: 20210628
  Transmission Date: 20210717
  Serious: Yes (Hospitalization)
  Sender: FDA-Public Use
  Company Number: CA-TEVA-2020-CA-1802422

PATIENT
  Age: 65 Year
  Sex: Female
  Weight: 91 kg

DRUGS (9)
  1. OXALIPLATIN. [Suspect]
     Active Substance: OXALIPLATIN
     Route: 042
  2. IRBESARTAN. [Concomitant]
     Active Substance: IRBESARTAN
  3. PANCREATIC ENZYMES [Concomitant]
     Active Substance: UNSPECIFIED INGREDIENT
  4. CARVEDILOL. [Concomitant]
     Active Substance: CARVEDILOL
  5. ESCITALOPRAM [Concomitant]
     Active Substance: ESCITALOPRAM OXALATE
  6. FOSFOMYCIN [Concomitant]
     Active Substance: FOSFOMYCIN
  7. KETOPROFEN. [Concomitant]
     Active Substance: KETOPROFEN
  8. LANSOPRAZOLE. [Concomitant]
     Active Substance: LANSOPRAZOLE
  9. IRINOTECAN HYDROCHLORIDE. [Suspect]
     Active Substance: IRINOTECAN HYDROCHLORIDE
     Route: 042

REACTIONS (6)
  - Acute kidney injury [Unknown]
  - Fatigue [Unknown]
  - Pancytopenia [Unknown]
  - Malaise [Unknown]
  - Neutropenia [Unknown]
  - Klebsiella bacteraemia [Unknown]
